FAERS Safety Report 17913978 (Version 1)
Quarter: 2020Q2

REPORT INFORMATION
  Report Type: Spontaneous
  Country: US (occurrence: US)
  Receive Date: 20200618
  Receipt Date: 20200618
  Transmission Date: 20200714
  Serious: No
  Sender: FDA-Public Use
  Company Number: US-ROCHE-2558263

PATIENT
  Age: 17 Year
  Sex: Female

DRUGS (1)
  1. XOFLUZA [Suspect]
     Active Substance: BALOXAVIR MARBOXIL
     Indication: INFLUENZA
     Route: 065
     Dates: start: 20200222

REACTIONS (5)
  - Dysphagia [Recovering/Resolving]
  - Rash pruritic [Not Recovered/Not Resolved]
  - Pharyngeal mass [Recovering/Resolving]
  - Erythema [Not Recovered/Not Resolved]
  - Swelling face [Not Recovered/Not Resolved]
